FAERS Safety Report 14067690 (Version 2)
Quarter: 2017Q4

REPORT INFORMATION
  Report Type: Spontaneous
  Country: US (occurrence: US)
  Receive Date: 20171009
  Receipt Date: 20171219
  Transmission Date: 20180321
  Serious: Yes (Hospitalization)
  Sender: FDA-Public Use
  Company Number: US-ELI_LILLY_AND_COMPANY-US201710001468

PATIENT
  Age: 48 Year
  Sex: Female
  Weight: 53.52 kg

DRUGS (2)
  1. HUMALOG [Suspect]
     Active Substance: INSULIN LISPRO
     Dosage: UNK, UNKNOWN
     Dates: start: 20170905
  2. HUMALOG [Suspect]
     Active Substance: INSULIN LISPRO
     Indication: TYPE 1 DIABETES MELLITUS
     Dosage: UNK, UNKNOWN
     Dates: start: 2000

REACTIONS (10)
  - Headache [Recovering/Resolving]
  - Drug ineffective [Unknown]
  - Blood glucose increased [Recovering/Resolving]
  - Hyperglycaemia [Recovering/Resolving]
  - Decreased appetite [Recovering/Resolving]
  - Dyspnoea [Recovering/Resolving]
  - Diabetic ketoacidosis [Recovering/Resolving]
  - Dehydration [Recovering/Resolving]
  - Fatigue [Recovering/Resolving]
  - Vomiting [Recovering/Resolving]

NARRATIVE: CASE EVENT DATE: 20170905
